FAERS Safety Report 19164315 (Version 1)
Quarter: 2021Q2

REPORT INFORMATION
  Report Type: Spontaneous
  Country: MX (occurrence: MX)
  Receive Date: 20210421
  Receipt Date: 20210421
  Transmission Date: 20210717
  Serious: Yes (Hospitalization)
  Sender: FDA-Public Use
  Company Number: MX-PFIZER INC-2021324945

PATIENT
  Age: 91 Year
  Sex: Female
  Weight: 50 kg

DRUGS (1)
  1. ATIVAN [Suspect]
     Active Substance: LORAZEPAM
     Indication: ANXIETY
     Dosage: 2 MG, DAILY

REACTIONS (2)
  - Myocardial infarction [Unknown]
  - Product use issue [Unknown]
